FAERS Safety Report 24356237 (Version 1)
Quarter: 2024Q3

REPORT INFORMATION
  Report Type: Spontaneous
  Country: BE (occurrence: BE)
  Receive Date: 20240924
  Receipt Date: 20240924
  Transmission Date: 20241016
  Serious: Yes (Hospitalization, Other)
  Sender: RANBAXY
  Company Number: BE-SUN PHARMACEUTICAL INDUSTRIES LTD-2024R1-469314

PATIENT
  Age: 42 Year
  Sex: Female

DRUGS (4)
  1. OXALIPLATIN [Suspect]
     Active Substance: OXALIPLATIN
     Indication: Hyperthermic chemotherapy
     Dosage: 460 MILLIGRAM/SQ. METER
     Route: 065
  2. SODIUM CHLORIDE [Suspect]
     Active Substance: SODIUM CHLORIDE
     Indication: Hyperthermic chemotherapy
     Dosage: 250 MILLIGRAM
     Route: 040
  3. LEUCOVORIN SODIUM [Suspect]
     Active Substance: LEUCOVORIN SODIUM
     Indication: Hyperthermic chemotherapy
     Dosage: 20 MILLIGRAM/SQ. METER
     Route: 040
  4. FLUOROURACIL [Suspect]
     Active Substance: FLUOROURACIL
     Indication: Hyperthermic chemotherapy
     Dosage: 400 MILLIGRAM/SQ. METER
     Route: 040

REACTIONS (1)
  - Nausea [Unknown]
